FAERS Safety Report 14304496 (Version 1)
Quarter: 2017Q4

REPORT INFORMATION
  Report Type: Spontaneous
  Country: JP (occurrence: JP)
  Receive Date: 20171219
  Receipt Date: 20171219
  Transmission Date: 20180321
  Serious: Yes (Hospitalization)
  Sender: FDA-Public Use
  Company Number: JP-OTSUKA-012143

PATIENT
  Age: 15 Year
  Sex: Female

DRUGS (7)
  1. KIPRES [Concomitant]
     Active Substance: MONTELUKAST SODIUM
     Dosage: 5 MG, QD
     Route: 048
     Dates: start: 201010
  2. KIPRESS [Concomitant]
     Dosage: UNK
     Dates: start: 201010
  3. CLARITIN [Concomitant]
     Active Substance: LORATADINE
     Dosage: 10 MG, QD
     Route: 048
     Dates: start: 201010
  4. AMOXAN [Suspect]
     Active Substance: AMOXAPINE
     Dosage: 10 MG, QD
     Route: 048
     Dates: start: 20100622
  5. NICHIMALON [Concomitant]
     Dosage: 1.5 MG, QD
     Route: 048
     Dates: start: 20101105
  6. ABILIFY [Suspect]
     Active Substance: ARIPIPRAZOLE
     Dosage: 1 MG, QD
     Route: 048
     Dates: start: 20101118
  7. ABILIFY [Suspect]
     Active Substance: ARIPIPRAZOLE
     Dosage: 1 MG, QD
     Route: 048
     Dates: start: 20101118

REACTIONS (1)
  - Drug-induced liver injury [Unknown]

NARRATIVE: CASE EVENT DATE: 20101126
